FAERS Safety Report 14787146 (Version 1)
Quarter: 2018Q2

REPORT INFORMATION
  Report Type: Report from Study
  Country: FR (occurrence: FR)
  Receive Date: 20180421
  Receipt Date: 20180421
  Transmission Date: 20180711
  Serious: Yes (Other)
  Sender: FDA-Public Use
  Company Number: FR-ROCHE-2090394

PATIENT
  Age: 63 Year
  Sex: Female
  Weight: 74 kg

DRUGS (14)
  1. LEVOCARNIL [Concomitant]
     Active Substance: LEVOCARNITINE
     Indication: METABOLIC SYNDROME
     Route: 065
  2. EXFORGE [Concomitant]
     Active Substance: AMLODIPINE BESYLATE\VALSARTAN
     Indication: HYPERTENSION
     Route: 065
  3. RIBAVIRIN. [Suspect]
     Active Substance: RIBAVIRIN
     Route: 048
     Dates: start: 2016, end: 2016
  4. LOGROTON [Concomitant]
     Indication: HYPERTENSION
     Route: 065
  5. PHYSIOTENS [Concomitant]
     Active Substance: MOXONIDINE
     Indication: HYPERTENSION
     Route: 065
  6. RIBAVIRIN. [Suspect]
     Active Substance: RIBAVIRIN
     Indication: CHRONIC HEPATITIS C
     Dosage: LAST DOSE PRIOR TO ONSET OF EVENT ON 08/JUL/2016.
     Route: 048
     Dates: start: 20160416
  7. EPREX [Concomitant]
     Active Substance: ERYTHROPOIETIN
     Indication: PRODUCT USED FOR UNKNOWN INDICATION
     Route: 065
  8. ASPEGIC [Concomitant]
     Active Substance: ASPIRIN DL-LYSINE
     Indication: PRODUCT USED FOR UNKNOWN INDICATION
     Route: 065
  9. FLECAINE [Concomitant]
     Active Substance: FLECAINIDE
     Indication: CEREBROVASCULAR ACCIDENT
     Route: 065
  10. EXVIERA [Suspect]
     Active Substance: DASABUVIR
     Indication: HEPATITIS C
     Dosage: LAST DOSE PRIOR TO ONSET OF EVENT ON 08/JUL/2016.
     Route: 048
     Dates: start: 20160416
  11. DETENSIEL [Concomitant]
     Active Substance: BISOPROLOL FUMARATE
     Indication: HYPERTENSION
     Route: 065
  12. TANGANIL [Concomitant]
     Active Substance: ACETYLLEUCINE
     Indication: PRODUCT USED FOR UNKNOWN INDICATION
     Route: 065
  13. VIEKIRAX [Suspect]
     Active Substance: OMBITASVIR\PARITAPREVIR\RITONAVIR
     Indication: HEPATITIS C
     Dosage: LAST DOSE PRIOR TO ONSET OF EVENT ON 08/JUL/2016.
     Route: 048
     Dates: start: 20160416
  14. METEOSPASMYL (ALVERINE CITRATE\DIMETHICONE) [Concomitant]
     Active Substance: ALVERINE CITRATE\DIMETHICONE
     Indication: PRODUCT USED FOR UNKNOWN INDICATION
     Route: 065

REACTIONS (4)
  - Anaemia [Recovered/Resolved]
  - Back pain [Recovered/Resolved]
  - Impaired gastric emptying [Not Recovered/Not Resolved]
  - Asthenia [Recovered/Resolved]

NARRATIVE: CASE EVENT DATE: 20160416
